FAERS Safety Report 7763464-1 (Version None)
Quarter: 2011Q3

REPORT INFORMATION
  Report Type: 
  Country: None (occurrence: None)
  Receive Date: 20110920
  Receipt Date: 20110914
  Transmission Date: 20111222
  Serious: Yes (Other)
  Sender: FDA-Public Use
  Company Number: US-PFIZER INC-2011217559

PATIENT
  Sex: Female
  Weight: 93.4 kg

DRUGS (5)
  1. LEVOXYL [Concomitant]
     Indication: THYROID DISORDER
     Dosage: 0.1 MG, DAILY
  2. TRIAMTERENE AND HYDROCHLOROTHIAZIDE [Concomitant]
     Indication: FLUID IMBALANCE
     Dosage: 37.5/25 MG, DAILY
  3. GABAPENTIN [Suspect]
     Indication: HERPES ZOSTER
     Dosage: 400 MG, 3X/DAY
     Route: 048
     Dates: start: 20061001
  4. GABAPENTIN [Suspect]
     Indication: POST HERPETIC NEURALGIA
     Dosage: 300 MG, 3X/DAY
     Route: 048
  5. TRIAMTERENE AND HYDROCHLOROTHIAZIDE [Concomitant]
     Indication: BLOOD PRESSURE ABNORMAL

REACTIONS (7)
  - WEIGHT INCREASED [None]
  - BEDRIDDEN [None]
  - ACTIVITIES OF DAILY LIVING IMPAIRED [None]
  - DIZZINESS [None]
  - IMPAIRED DRIVING ABILITY [None]
  - MACULE [None]
  - AMNESIA [None]
